FAERS Safety Report 4755142-8 (Version None)
Quarter: 2005Q3

REPORT INFORMATION
  Report Type: 
  Country: None (occurrence: None)
  Receive Date: 20050829
  Receipt Date: 20050822
  Transmission Date: 20060218
  Serious: Yes (Hospitalization)
  Sender: FDA-Public Use
  Company Number: US-SANOFI-SYNTHELABO-F01200501640

PATIENT
  Sex: Male
  Weight: 83.1 kg

DRUGS (6)
  1. OXALIPLATIN [Suspect]
     Indication: COLORECTAL CANCER METASTATIC
     Route: 042
     Dates: start: 20050808, end: 20050808
  2. FLUOROURACIL [Suspect]
     Dosage: 2400 MG/M2 IV ON DAY 1 AND DAY 2, Q2W
     Route: 042
     Dates: start: 20050808
  3. LEUCOVORIN [Suspect]
     Route: 042
     Dates: start: 20050808, end: 20050808
  4. BEVACIZUMAB [Suspect]
     Route: 042
     Dates: start: 20050808, end: 20050808
  5. CA/MG OR PLACEBO [Suspect]
     Route: 042
     Dates: start: 20050808
  6. ASPIRIN [Concomitant]
     Indication: PROPHYLAXIS

REACTIONS (4)
  - DEHYDRATION [None]
  - DERMATITIS EXFOLIATIVE [None]
  - DIHYDROPYRIMIDINE DEHYDROGENASE DEFICIENCY [None]
  - MUCOSAL INFLAMMATION [None]
